FAERS Safety Report 16021434 (Version 2)
Quarter: 2019Q3

REPORT INFORMATION
  Report Type: Spontaneous
  Country: CA (occurrence: CA)
  Receive Date: 20190301
  Receipt Date: 20190920
  Transmission Date: 20191004
  Serious: Yes (Hospitalization, Other)
  Sender: FDA-Public Use
  Company Number: CA-AUROBINDO-AUR-APL-2019-009852

PATIENT
  Age: 76 Year
  Sex: Female

DRUGS (14)
  1. CARVEDILOL TABLETS [Suspect]
     Active Substance: CARVEDILOL
     Dosage: 12.5 MILLIGRAM, TWO TIMES A DAY
     Route: 065
  2. CARVEDILOL TABLETS [Suspect]
     Active Substance: CARVEDILOL
     Indication: CARDIAC FAILURE CHRONIC
     Dosage: 25 MILLIGRAM, TWO TIMES A DAY
     Route: 065
  3. EPLERENONE. [Suspect]
     Active Substance: EPLERENONE
     Dosage: 25 MILLIGRAM, DAILY
     Route: 065
  4. ENALAPRIL MALEATE. [Suspect]
     Active Substance: ENALAPRIL MALEATE
     Indication: PRODUCT USED FOR UNKNOWN INDICATION
     Dosage: 5 MILLIGRAM, TWO TIMES A DAY
     Route: 065
  5. ENALAPRIL MALEATE. [Suspect]
     Active Substance: ENALAPRIL MALEATE
     Dosage: 5 MILLIGRAM
     Route: 065
  6. FUROSEMIDE. [Suspect]
     Active Substance: FUROSEMIDE
     Dosage: 20 MILLIGRAM
     Route: 065
  7. SPIRONOLACTONE. [Suspect]
     Active Substance: SPIRONOLACTONE
     Indication: CARDIAC FAILURE CHRONIC
     Dosage: 25 MILLIGRAM, ONCE A DAY
     Route: 065
  8. FUROSEMIDE. [Suspect]
     Active Substance: FUROSEMIDE
     Indication: CARDIAC FAILURE CHRONIC
     Dosage: 20 MILLIGRAM, ONCE A DAY
     Route: 065
  9. CLODRONATE DISODIUM [Concomitant]
     Active Substance: CLODRONATE DISODIUM
     Indication: MALIGNANT PLEURAL EFFUSION
     Dosage: UNK
     Route: 065
  10. EPLERENONE. [Suspect]
     Active Substance: EPLERENONE
     Indication: PRODUCT USED FOR UNKNOWN INDICATION
     Dosage: 25 MILLIGRAM
     Route: 065
  11. CARVEDILOL. [Suspect]
     Active Substance: CARVEDILOL
     Dosage: 12.5 MILLIGRAM
     Route: 065
  12. CARVEDILOL. [Suspect]
     Active Substance: CARVEDILOL
     Indication: CARDIAC FAILURE CHRONIC
     Dosage: 12.5 MILLIGRAM, TWO TIMES A DAY
     Route: 065
  13. ANASTROZOLE. [Concomitant]
     Active Substance: ANASTROZOLE
     Indication: MALIGNANT PLEURAL EFFUSION
     Dosage: UNK
     Route: 065
  14. VASOTEC [Suspect]
     Active Substance: ENALAPRIL MALEATE
     Indication: CARDIAC FAILURE CHRONIC
     Dosage: 5 MILLIGRAM, TWO TIMES A DAY
     Route: 048

REACTIONS (9)
  - Disease progression [Recovering/Resolving]
  - Cardiac failure [Unknown]
  - Tricuspid valve incompetence [Recovering/Resolving]
  - Hypotension [Recovering/Resolving]
  - Atrial enlargement [Recovering/Resolving]
  - Hypovolaemia [Recovering/Resolving]
  - Pulmonary arterial pressure increased [Recovering/Resolving]
  - N-terminal prohormone brain natriuretic peptide increased [Recovering/Resolving]
  - Drug ineffective [Unknown]
